FAERS Safety Report 14813265 (Version 2)
Quarter: 2018Q2

REPORT INFORMATION
  Report Type: Spontaneous
  Country: US (occurrence: US)
  Receive Date: 20180426
  Receipt Date: 20180608
  Transmission Date: 20180711
  Serious: No
  Sender: FDA-Public Use
  Company Number: US-UNITED THERAPEUTICS-UNT-2018-002375

PATIENT
  Sex: Male
  Weight: 77.98 kg

DRUGS (3)
  1. TYVASO [Suspect]
     Active Substance: TREPROSTINIL
     Dosage: 54 ?G, TID
  2. TYVASO [Suspect]
     Active Substance: TREPROSTINIL
     Indication: PULMONARY ARTERIAL HYPERTENSION
     Dosage: 18-54 MICROGRAM, QID
     Dates: start: 20170419
  3. TYVASO [Suspect]
     Active Substance: TREPROSTINIL
     Dosage: UNK

REACTIONS (5)
  - Nausea [Unknown]
  - Off label use [Unknown]
  - Fluid retention [Unknown]
  - Psychomotor hyperactivity [Unknown]
  - Dyspnoea [Not Recovered/Not Resolved]
